FAERS Safety Report 22869701 (Version 4)
Quarter: 2023Q4

REPORT INFORMATION
  Report Type: Spontaneous
  Country: KR (occurrence: KR)
  Receive Date: 20230826
  Receipt Date: 20231125
  Transmission Date: 20240110
  Serious: Yes (Death, Hospitalization, Other)
  Sender: FDA-Public Use
  Company Number: KR-Accord-375642

PATIENT
  Age: 83 Year
  Sex: Male
  Weight: 55.8 kg

DRUGS (21)
  1. FLUOROURACIL [Suspect]
     Active Substance: FLUOROURACIL
     Indication: Gastric cancer
     Dosage: 700/3200 MILLIGRAM, FOR BOLUS/CONTINUOUS FOR?46HRS
     Route: 042
     Dates: start: 20230323, end: 20230420
  2. OXALIPLATIN [Suspect]
     Active Substance: OXALIPLATIN
     Indication: Gastric cancer
     Dosage: ONCE
     Route: 042
     Dates: start: 20230323, end: 20230420
  3. LEUCOVORIN [Suspect]
     Active Substance: LEUCOVORIN\LEUCOVORIN CALCIUM
     Indication: Gastric cancer
     Dosage: ONCE
     Route: 042
     Dates: start: 20230323, end: 20230420
  4. ZIMBERELIMAB [Suspect]
     Active Substance: ZIMBERELIMAB
     Indication: Gastric cancer
     Dosage: ONCE
     Route: 042
     Dates: start: 20230323, end: 20230420
  5. NEXIUM [Concomitant]
     Active Substance: ESOMEPRAZOLE MAGNESIUM
     Indication: Abdominal pain
     Dates: start: 20230425, end: 20230619
  6. FEBUXOSTAT [Concomitant]
     Active Substance: FEBUXOSTAT
     Indication: Abdominal pain
     Dates: start: 20230425, end: 20230619
  7. MEGACE [Concomitant]
     Active Substance: MEGESTROL ACETATE
     Indication: Supportive care
     Dates: start: 20230406
  8. CYANOCOBALAMIN\PYRIDOXINE HYDROCHLORIDE\THIAMINE [Concomitant]
     Active Substance: CYANOCOBALAMIN\PYRIDOXINE HYDROCHLORIDE\THIAMINE
     Indication: Abdominal pain
     Dates: start: 20230425, end: 20230619
  9. BACLAN [Concomitant]
     Indication: Hiccups
     Dates: start: 20230425, end: 20230619
  10. FENTANYL [Concomitant]
     Active Substance: FENTANYL\FENTANYL CITRATE
     Indication: Abdominal pain
     Dates: start: 20230425, end: 20230619
  11. ACETAMINOPHEN\CODEINE PHOSPHATE [Concomitant]
     Active Substance: ACETAMINOPHEN\CODEINE PHOSPHATE
     Indication: Abdominal pain
     Dates: start: 20230417
  12. FLOSPAN [Concomitant]
     Indication: Abdominal pain
     Dates: start: 20230417, end: 20230424
  13. LAFUTIDINE [Concomitant]
     Active Substance: LAFUTIDINE
     Indication: Abdominal pain
     Dates: start: 20230417, end: 20230424
  14. REBAMIPIDE [Concomitant]
     Active Substance: REBAMIPIDE
     Indication: Abdominal pain
     Dates: start: 20230423
  15. LACTULOSE [Concomitant]
     Active Substance: LACTULOSE
     Indication: Abdominal pain
     Dates: start: 20230425, end: 20230507
  16. TRAMADOL HYDROCHLORIDE [Concomitant]
     Active Substance: TRAMADOL HYDROCHLORIDE
     Indication: Abdominal pain
     Dates: start: 20230426
  17. COSYNTROPIN HEXAACETATE [Concomitant]
     Active Substance: COSYNTROPIN HEXAACETATE
     Indication: Adrenal insufficiency
     Dates: start: 20230428, end: 20230428
  18. CALCIUM POLYCARBOPHIL [Concomitant]
     Active Substance: CALCIUM POLYCARBOPHIL
     Indication: Constipation
     Dates: start: 20230507, end: 20230507
  19. HEMOREX [Concomitant]
     Active Substance: WITCH HAZEL
     Indication: Constipation
     Dates: start: 20230508
  20. POLYETHYLENE GLYCOL 3350 [Concomitant]
     Active Substance: POLYETHYLENE GLYCOL 3350
     Indication: Constipation
     Dates: start: 20230507, end: 20230507
  21. FLUOROURACIL [Suspect]
     Active Substance: FLUOROURACIL
     Indication: Gastrointestinal carcinoma
     Dosage: FOR 46 HOURS, IV BOLUS
     Route: 042
     Dates: start: 20230323, end: 20230420

REACTIONS (5)
  - Pneumonia [Fatal]
  - Asthenia [Recovered/Resolved]
  - Subdural haemorrhage [Unknown]
  - Anal incontinence [Unknown]
  - Neutrophil count decreased [Recovered/Resolved]

NARRATIVE: CASE EVENT DATE: 20230413
